FAERS Safety Report 4474793-1 (Version None)
Quarter: 2004Q4

REPORT INFORMATION
  Report Type: 
  Country: None (occurrence: None)
  Receive Date: 20041012
  Receipt Date: 20040923
  Transmission Date: 20050328
  Serious: Yes (Hospitalization)
  Sender: FDA-Public Use
  Company Number: DSA_25040_2004

PATIENT
  Age: 67 Year
  Sex: Male

DRUGS (11)
  1. ENALAPRIL MALEATE [Suspect]
     Indication: HYPERTENSION
     Dates: start: 19951108, end: 19960130
  2. DIAMICRON [Concomitant]
  3. GLUCOPHAGE [Concomitant]
  4. MEDIATOR [Concomitant]
  5. CORDARONE [Concomitant]
  6. CALCIPARINE [Concomitant]
  7. NUBAIN [Concomitant]
  8. HYPNOVEL [Concomitant]
  9. DROLEPTAN [Concomitant]
  10. FLECAINE [Concomitant]
  11. FOZITEC [Concomitant]

REACTIONS (2)
  - BENIGN PROSTATIC HYPERPLASIA [None]
  - SUBILEUS [None]
